FAERS Safety Report 8989367 (Version 2)
Quarter: 2013Q4

REPORT INFORMATION
  Report Type: Spontaneous
  Country: US (occurrence: US)
  Receive Date: 20121228
  Receipt Date: 20131028
  Transmission Date: 20140711
  Serious: Yes (Hospitalization, Disabling)
  Sender: FDA-Public Use
  Company Number: US-BAYER-2012-135674

PATIENT
  Sex: Female

DRUGS (5)
  1. YAZ [Suspect]
     Dosage: UNK
     Dates: start: 200809, end: 20111107
  2. GIANVI [Suspect]
     Dosage: UNK
     Dates: start: 200809, end: 20111107
  3. YASMIN [Suspect]
  4. CLINDAMYCIN PHOSPHATE [Concomitant]
     Dosage: 1 %, UNK
  5. CLENIA [Concomitant]
     Dosage: 10 TO 5%

REACTIONS (8)
  - Gallbladder disorder [None]
  - Injury [None]
  - Pain [None]
  - Deformity [None]
  - Anxiety [None]
  - Anhedonia [None]
  - Biliary dyskinesia [None]
  - Cholecystitis chronic [None]
